FAERS Safety Report 17871072 (Version 1)
Quarter: 2020Q2

REPORT INFORMATION
  Report Type: Spontaneous
  Country: US (occurrence: US)
  Receive Date: 20200606
  Receipt Date: 20200606
  Transmission Date: 20200714
  Serious: Yes (Other)
  Sender: FDA-Public Use
  Company Number: None

PATIENT
  Age: 36 Year
  Sex: Female

DRUGS (1)
  1. TALTZ [Suspect]
     Active Substance: IXEKIZUMAB
     Indication: PSORIASIS
     Route: 058
     Dates: start: 20200513

REACTIONS (4)
  - Pyrexia [None]
  - Feeling hot [None]
  - Urticaria [None]
  - Peripheral swelling [None]

NARRATIVE: CASE EVENT DATE: 202005
